FAERS Safety Report 8682649 (Version 2)
Quarter: 2012Q4

REPORT INFORMATION
  Report Type: Report from Study
  Country: US (occurrence: US)
  Receive Date: 20120725
  Receipt Date: 20121214
  Transmission Date: 20130627
  Serious: Yes (Hospitalization)
  Sender: FDA-Public Use
  Company Number: US-US-EMD SERONO, INC.-7148906

PATIENT
  Sex: Female
  Weight: 72 kg

DRUGS (4)
  1. REBIF [Suspect]
     Indication: MULTIPLE SCLEROSIS
     Route: 058
     Dates: start: 20100718
  2. MELOXICAM [Suspect]
     Indication: PAIN IN EXTREMITY
     Dosage: Four or five years
     Dates: end: 2012
  3. LISINOPRIL [Concomitant]
     Indication: HYPERTENSION
  4. PRILOSEC [Concomitant]
     Indication: REFLUX GASTRITIS

REACTIONS (2)
  - Gastric ulcer haemorrhage [Recovered/Resolved]
  - Multiple sclerosis relapse [Recovered/Resolved]
